FAERS Safety Report 5798797-1 (Version None)
Quarter: 2008Q2

REPORT INFORMATION
  Report Type: 
  Country: None (occurrence: None)
  Receive Date: 20080630
  Receipt Date: 20080613
  Transmission Date: 20081010
  Serious: Yes (Death, Hospitalization)
  Sender: FDA-Public Use
  Company Number: L08-NLD-02160-12

PATIENT
  Age: 85 Year

DRUGS (3)
  1. CITALOPRAM HYDROBROMIDE [Suspect]
  2. BENZODIAZEPINE [Concomitant]
  3. OTHER DRUGS [Concomitant]

REACTIONS (4)
  - OVERDOSE [None]
  - POISONING [None]
  - RESPIRATORY ARREST [None]
  - TACHYCARDIA [None]
